FAERS Safety Report 7030449-2 (Version None)
Quarter: 2010Q4

REPORT INFORMATION
  Report Type: 
  Country: None (occurrence: None)
  Receive Date: 20101006
  Receipt Date: 20100923
  Transmission Date: 20110411
  Serious: Yes (Hospitalization, Other)
  Sender: FDA-Public Use
  Company Number: FR-ACTELION-A-CH2010-40296

PATIENT
  Age: 80 Year
  Sex: Female

DRUGS (4)
  1. TRACLEER [Suspect]
     Indication: PULMONARY ARTERIAL HYPERTENSION
     Dosage: 125 MG, BID
     Route: 048
     Dates: start: 20070601, end: 20100301
  2. TRACLEER [Suspect]
     Dosage: UNK , UNK
     Route: 048
  3. REVATIO [Suspect]
     Dosage: 20 MG, TID
     Route: 048
     Dates: start: 20100305
  4. LASIX [Concomitant]

REACTIONS (11)
  - CARDIAC FAILURE [None]
  - DISEASE PROGRESSION [None]
  - DRUG DISPENSING ERROR [None]
  - DYSPNOEA [None]
  - GENERAL PHYSICAL HEALTH DETERIORATION [None]
  - HEPATOJUGULAR REFLUX [None]
  - HIP FRACTURE [None]
  - HIP SURGERY [None]
  - OXYGEN SATURATION DECREASED [None]
  - PULMONARY ARTERIAL HYPERTENSION [None]
  - RENAL FAILURE ACUTE [None]
